FAERS Safety Report 4486692-X (Version None)
Quarter: 2004Q4

REPORT INFORMATION
  Report Type: 
  Country: None (occurrence: None)
  Receive Date: 20041021
  Receipt Date: 20041008
  Transmission Date: 20050328
  Serious: Yes (Life-Threatening)
  Sender: FDA-Public Use
  Company Number: 1515-076

PATIENT
  Age: 53 Year
  Sex: Male

DRUGS (3)
  1. VENOFER [Suspect]
     Indication: NEPHROGENIC ANAEMIA
     Dosage: 100 MG, IV
     Route: 042
  2. VIFOR (INTERNATIONAL) INC. [Suspect]
  3. CORDARONE [Concomitant]

REACTIONS (2)
  - ATRIAL FIBRILLATION [None]
  - BLOOD PRESSURE DECREASED [None]
